FAERS Safety Report 10097978 (Version 3)
Quarter: 2014Q2

REPORT INFORMATION
  Report Type: Report from Study
  Country: US (occurrence: US)
  Receive Date: 20140423
  Receipt Date: 20140610
  Transmission Date: 20141212
  Serious: Yes (Hospitalization)
  Sender: FDA-Public Use
  Company Number: US-BRISTOL-MYERS SQUIBB COMPANY-20640348

PATIENT
  Age: 15 Year
  Sex: Male
  Weight: 67.1 kg

DRUGS (10)
  1. IPILIMUMAB [Suspect]
     Indication: MALIGNANT MELANOMA
     Route: 042
     Dates: start: 20140404
  2. HYDROMORPHONE [Concomitant]
  3. CEFTRIAXONE [Concomitant]
  4. PREDNISONE [Concomitant]
  5. MORPHINE [Concomitant]
  6. KETOROLAC [Concomitant]
  7. LORAZEPAM [Concomitant]
  8. HYDROCODONE + ACETAMINOPHEN [Concomitant]
  9. LIDOCAINE [Concomitant]
  10. METHYLPREDNISOLONE [Concomitant]

REACTIONS (1)
  - Pleural effusion [Recovering/Resolving]
